FAERS Safety Report 7357632-0 (Version None)
Quarter: 2011Q1

REPORT INFORMATION
  Report Type: 
  Country: None (occurrence: None)
  Receive Date: 20110309
  Receipt Date: 20110210
  Transmission Date: 20110831
  Serious: Yes (Hospitalization)
  Sender: FDA-Public Use
  Company Number: 2010RR-33329

PATIENT
  Age: 17 Year
  Sex: Male

DRUGS (6)
  1. AMOXICILLIN [Suspect]
  2. TOXIC EPIDERMAL NECROLYSIS (TOXIC EPIDERMAL NECROLYSIS) [Suspect]
     Dates: start: 20070501
  3. BEPOTASTINE BESILATE (BEPOTASTINE BESTILATE) [Suspect]
  4. ZONISAMIDE [Suspect]
     Dates: start: 20070501
  5. CEFDITOREN (CEFDITOREN) [Suspect]
  6. CARBOCISTEINE (CARBOCISTEINE) [Suspect]

REACTIONS (8)
  - PYREXIA [None]
  - CORNEAL EROSION [None]
  - DRUG RASH WITH EOSINOPHILIA AND SYSTEMIC SYMPTOMS [None]
  - RESPIRATORY DISORDER [None]
  - LYMPHOCYTE STIMULATION TEST POSITIVE [None]
  - TOXIC EPIDERMAL NECROLYSIS [None]
  - CROSS SENSITIVITY REACTION [None]
  - HUMAN HERPES VIRUS 6 SEROLOGY POSITIVE [None]
